FAERS Safety Report 23926248 (Version 1)
Quarter: 2024Q2

REPORT INFORMATION
  Report Type: Report from Study
  Country: AR (occurrence: AR)
  Receive Date: 20240531
  Receipt Date: 20240531
  Transmission Date: 20240715
  Serious: Yes (Other)
  Sender: FDA-Public Use
  Company Number: AR-ABBVIE-5781034

PATIENT
  Sex: Female

DRUGS (1)
  1. RINVOQ [Suspect]
     Active Substance: UPADACITINIB
     Indication: Rheumatoid arthritis
     Dosage: FORM STRENGTH: 15 MILLIGRAM,?LAST ADMIN DATE : 2024
     Route: 048
     Dates: start: 20240302

REACTIONS (1)
  - Joint fistula [Recovering/Resolving]

NARRATIVE: CASE EVENT DATE: 20240101
